FAERS Safety Report 6263303-4 (Version None)
Quarter: 2009Q3

REPORT INFORMATION
  Report Type: 
  Country: None (occurrence: None)
  Receive Date: 20090710
  Receipt Date: 20090401
  Transmission Date: 20100115
  Serious: No
  Sender: FDA-Public Use
  Company Number: A0776619A

PATIENT
  Age: 64 Year
  Sex: Female

DRUGS (8)
  1. REQUIP XL [Suspect]
     Indication: PARKINSON'S DISEASE
     Dosage: 2 PER DAY
     Route: 048
     Dates: start: 20090327
  2. LIPITOR [Concomitant]
  3. ZETIA [Concomitant]
  4. AVALIDE [Concomitant]
  5. AMITRIPTYLINE HCL [Concomitant]
  6. CO Q10 [Concomitant]
  7. VITAMIN B COMPLEX CAP [Concomitant]
  8. LOVAZA [Concomitant]

REACTIONS (1)
  - DRUG INEFFECTIVE [None]
